FAERS Safety Report 4440527-X (Version None)
Quarter: 2004Q3

REPORT INFORMATION
  Report Type: 
  Country: None (occurrence: None)
  Receive Date: 20040826
  Receipt Date: 20030807
  Transmission Date: 20050211
  Serious: Yes (Death, Life-Threatening, Hospitalization)
  Sender: FDA-Public Use
  Company Number: 2003-05436

PATIENT
  Age: 45 Year
  Sex: Male
  Weight: 68.0396 kg

DRUGS (7)
  1. VISTIDE [Suspect]
     Indication: CYTOMEGALOVIRUS CHORIORETINITIS
     Dosage: 360 MG, ONCE A DAY
     Dates: start: 20030224, end: 20030329
  2. FOSCARNET [Suspect]
     Indication: CYTOMEGALOVIRUS CHORIORETINITIS
  3. FUZEON [Concomitant]
  4. VIREAD [Concomitant]
  5. SUSTIVA [Concomitant]
  6. EPIVIR [Concomitant]
  7. ABACAVIR (ABACAVIR) [Concomitant]

REACTIONS (1)
  - RENAL FAILURE ACUTE [None]
